FAERS Safety Report 11619341 (Version 1)
Quarter: 2015Q4

REPORT INFORMATION
  Report Type: Report from Study
  Country: MX (occurrence: MX)
  Receive Date: 20151012
  Receipt Date: 20151012
  Transmission Date: 20160304
  Serious: Yes (Hospitalization)
  Sender: FDA-Public Use
  Company Number: US-ASTRAZENECA-2015SE98094

PATIENT
  Age: 3 Month
  Sex: Male
  Weight: 5.4 kg

DRUGS (2)
  1. SYNAGIS [Suspect]
     Active Substance: PALIVIZUMAB
     Indication: PREMATURE BABY
     Route: 030
     Dates: start: 20150828
  2. SYNAGIS [Suspect]
     Active Substance: PALIVIZUMAB
     Indication: PREMATURE BABY
     Route: 030
     Dates: start: 20151001

REACTIONS (4)
  - Otorrhoea [Unknown]
  - Abdominal pain [Unknown]
  - Crying [Unknown]
  - Ear pain [Unknown]

NARRATIVE: CASE EVENT DATE: 201509
